FAERS Safety Report 13865300 (Version 2)
Quarter: 2017Q3

REPORT INFORMATION
  Report Type: Spontaneous
  Country: CH (occurrence: CH)
  Receive Date: 20170814
  Receipt Date: 20170814
  Transmission Date: 20171127
  Serious: Yes (Hospitalization)
  Sender: FDA-Public Use
  Company Number: CH-BAYER-2017-149616

PATIENT
  Age: 90 Year
  Sex: Female

DRUGS (13)
  1. MONURIL [Suspect]
     Active Substance: FOSFOMYCIN SODIUM
     Dosage: 3 G, UNK
     Route: 048
     Dates: start: 20170113, end: 20170113
  2. METFORMIN [Concomitant]
     Active Substance: METFORMIN HYDROCHLORIDE
  3. PRAVASTATIN. [Concomitant]
     Active Substance: PRAVASTATIN
  4. NEXIUM [Concomitant]
     Active Substance: ESOMEPRAZOLE MAGNESIUM
  5. OLMETEC [Concomitant]
     Active Substance: OLMESARTAN MEDOXOMIL
     Dates: end: 20161226
  6. ASPIRIN CARDIO 100 MG [Suspect]
     Active Substance: ASPIRIN
     Dosage: 100 MG, QD
     Route: 048
     Dates: end: 20170102
  7. DIGOXINE [Suspect]
     Active Substance: DIGOXIN
     Dosage: 125 MG, UNK
     Dates: start: 20170111
  8. CLEXANE [Suspect]
     Active Substance: ENOXAPARIN SODIUM
     Dosage: 40 MG, QD
     Route: 058
     Dates: start: 20160130, end: 20170102
  9. TORASEMIDE [Concomitant]
     Active Substance: TORSEMIDE
  10. TAMIFLU [Concomitant]
     Active Substance: OSELTAMIVIR PHOSPHATE
     Dates: start: 20161229, end: 20170104
  11. DIGOXINE [Suspect]
     Active Substance: DIGOXIN
     Dosage: .25 MG, UNK
     Route: 048
     Dates: start: 201603, end: 20161225
  12. ZANIDIP [Concomitant]
     Active Substance: LERCANIDIPINE HYDROCHLORIDE
     Dates: end: 20161226
  13. METOLAZONE. [Suspect]
     Active Substance: METOLAZONE
     Dosage: 2.5 G, QD
     Route: 048
     Dates: start: 20170113, end: 20170115

REACTIONS (3)
  - Syncope [Recovered/Resolved]
  - Shock haemorrhagic [Recovered/Resolved]
  - Drug eruption [Recovered/Resolved]

NARRATIVE: CASE EVENT DATE: 20161225
